FAERS Safety Report 24311696 (Version 1)
Quarter: 2024Q3

REPORT INFORMATION
  Report Type: Spontaneous
  Country: CR (occurrence: CR)
  Receive Date: 20240912
  Receipt Date: 20240912
  Transmission Date: 20241017
  Serious: Yes (Other)
  Sender: PFIZER
  Company Number: CR-PFIZER INC-PV202400119369

PATIENT
  Age: 64 Year
  Sex: Male

DRUGS (2)
  1. LORBRENA [Suspect]
     Active Substance: LORLATINIB
     Dosage: 100 MG, 1X/DAY
     Dates: start: 202311, end: 20240906
  2. LORBRENA [Suspect]
     Active Substance: LORLATINIB
     Dosage: 75 MG, 1X/DAY
     Dates: start: 20240907

REACTIONS (15)
  - Hallucination, visual [Unknown]
  - Vision blurred [Unknown]
  - Altered visual depth perception [Unknown]
  - Memory impairment [Unknown]
  - Pain in jaw [Unknown]
  - Musculoskeletal stiffness [Unknown]
  - Mastication disorder [Unknown]
  - Weight increased [Unknown]
  - Hair texture abnormal [Unknown]
  - Salivary hypersecretion [Unknown]
  - Arthralgia [Unknown]
  - Muscle tightness [Unknown]
  - Hypertension [Unknown]
  - Blood cholesterol increased [Unknown]
  - Fluid retention [Unknown]
